FAERS Safety Report 10471269 (Version 1)
Quarter: 2014Q3

REPORT INFORMATION
  Report Type: Spontaneous
  Country: US (occurrence: US)
  Receive Date: 20140923
  Receipt Date: 20140923
  Transmission Date: 20150326
  Serious: Yes (Hospitalization)
  Sender: FDA-Public Use
  Company Number: US-INCYTE CORPORATION-2014IN002620

PATIENT
  Age: 77 Year
  Sex: Female

DRUGS (8)
  1. ESTRADIOL. [Concomitant]
     Active Substance: ESTRADIOL
  2. PROGESTERONE. [Concomitant]
     Active Substance: PROGESTERONE
  3. ANAGRELIDE [Concomitant]
     Active Substance: ANAGRELIDE
  4. ATENOLOL. [Concomitant]
     Active Substance: ATENOLOL
  5. FOSINOPRIL [Concomitant]
     Active Substance: FOSINOPRIL
  6. JAKAFI [Suspect]
     Active Substance: RUXOLITINIB
     Dosage: 15 MG, BID
     Route: 048
     Dates: start: 20140821
  7. SIMVASTATIN. [Concomitant]
     Active Substance: SIMVASTATIN
  8. POTASSIUM [Concomitant]
     Active Substance: POTASSIUM

REACTIONS (1)
  - Nephrolithiasis [Unknown]

NARRATIVE: CASE EVENT DATE: 20140913
